FAERS Safety Report 9494044 (Version 1)
Quarter: 2013Q4

REPORT INFORMATION
  Report Type: Spontaneous
  Country: US (occurrence: None)
  Receive Date: 20130829
  Receipt Date: 20130829
  Transmission Date: 20140711
  Serious: Yes (Hospitalization, Other)
  Sender: FDA-Public Use
  Company Number: None

PATIENT
  Age: 19 Year
  Sex: Female

DRUGS (3)
  1. LIORESAL [Suspect]
     Indication: MUSCLE SPASTICITY
     Dosage: UNK MCG, DAILY INTRATH
     Route: 037
  2. HYDROCODONE [Concomitant]
  3. ANTI-ANXIETY MEDICINE (UNSPECIFIED) [Concomitant]

REACTIONS (10)
  - Medical device pain [None]
  - Medical device complication [None]
  - Pruritus [None]
  - Tremor [None]
  - Wrong drug administered [None]
  - Vomiting [None]
  - Rash macular [None]
  - Drug withdrawal syndrome [None]
  - Underdose [None]
  - Convulsion [None]
